FAERS Safety Report 13130577 (Version 2)
Quarter: 2018Q4

REPORT INFORMATION
  Report Type: Spontaneous
  Country: US (occurrence: US)
  Receive Date: 20170119
  Receipt Date: 20181123
  Transmission Date: 20190204
  Serious: Yes (Other)
  Sender: FDA-Public Use
  Company Number: US-TEVA-728930USA

PATIENT
  Age: 66 Year
  Sex: Female
  Weight: 70.37 kg

DRUGS (66)
  1. ISORDIL [Suspect]
     Active Substance: ISOSORBIDE DINITRATE
     Route: 065
  2. ZYRTEC [Suspect]
     Active Substance: CETIRIZINE HYDROCHLORIDE
     Dosage: 10 MILLIGRAM DAILY; AS NEEDED
     Route: 065
  3. DILAUDID [Suspect]
     Active Substance: HYDROMORPHONE HYDROCHLORIDE
     Route: 065
  4. LIALDA [Suspect]
     Active Substance: MESALAMINE
     Route: 065
  5. TYLENOL [Concomitant]
     Active Substance: ACETAMINOPHEN
  6. FOSAMAX [Concomitant]
     Active Substance: ALENDRONATE SODIUM
  7. VITAMIN D3 [Concomitant]
     Active Substance: CHOLECALCIFEROL
  8. VITAMIN B12 [Concomitant]
     Active Substance: CYANOCOBALAMIN
  9. LYRICA [Suspect]
     Active Substance: PREGABALIN
     Dosage: 100 MILLIGRAM DAILY; AT BEDTIME
     Route: 048
  10. COMPAZINE [Suspect]
     Active Substance: PROCHLORPERAZINE MALEATE
     Route: 065
  11. MVI (MULTIVITAMINS) [Concomitant]
  12. NASOCORT [Concomitant]
     Active Substance: BUDESONIDE
  13. FLEXERIL [Concomitant]
     Active Substance: CYCLOBENZAPRINE HYDROCHLORIDE
  14. VITAMIN D [Concomitant]
     Active Substance: CHOLECALCIFEROL
  15. NEXIUM [Concomitant]
     Active Substance: ESOMEPRAZOLE MAGNESIUM
  16. CALCIUM CARBONATE. [Concomitant]
     Active Substance: CALCIUM CARBONATE
  17. ZANAFLEX [Concomitant]
     Active Substance: TIZANIDINE HYDROCHLORIDE
  18. HYDROCORTISONE. [Concomitant]
     Active Substance: HYDROCORTISONE
  19. ENBREL [Suspect]
     Active Substance: ETANERCEPT
     Route: 065
  20. ANTIVERT [Suspect]
     Active Substance: MECLIZINE HYDROCHLORIDE
     Indication: DIZZINESS
     Dosage: 37.5 MILLIGRAM DAILY; AS NECESSARY
     Route: 048
  21. ZOLOFT [Concomitant]
     Active Substance: SERTRALINE HYDROCHLORIDE
  22. ADVAIR HFA [Concomitant]
     Active Substance: FLUTICASONE PROPIONATE\SALMETEROL XINAFOATE
  23. PHENERGAN [Concomitant]
     Active Substance: PROMETHAZINE HYDROCHLORIDE
  24. ISOPTO TEARS [Concomitant]
     Active Substance: HYPROMELLOSE 2910 (4000 MPA.S)
  25. ZINC. [Concomitant]
     Active Substance: ZINC
  26. RUBRAMIN [Concomitant]
  27. METHOTREXATE. [Suspect]
     Active Substance: METHOTREXATE
     Route: 065
  28. ACTIFED (PSEUDOEPHEDRINE HYDROCHLORIDE\TRIPROLIDINE HYDROCHLORIDE) [Suspect]
     Active Substance: PSEUDOEPHEDRINE HYDROCHLORIDE\TRIPROLIDINE HYDROCHLORIDE
     Route: 065
  29. ACTEMRA [Suspect]
     Active Substance: TOCILIZUMAB
     Route: 065
  30. COLCHICINE. [Suspect]
     Active Substance: COLCHICINE
     Route: 065
  31. VITAMIN D2 [Concomitant]
     Active Substance: ERGOCALCIFEROL
  32. VICODIN [Concomitant]
     Active Substance: ACETAMINOPHEN\HYDROCODONE BITARTRATE
  33. LAMICTAL [Concomitant]
     Active Substance: LAMOTRIGINE
  34. DIAMODE [Concomitant]
  35. DELTASONE [Concomitant]
     Active Substance: PREDNISONE
  36. XANAX [Suspect]
     Active Substance: ALPRAZOLAM
     Dosage: 1.5 MILLIGRAM DAILY; 1 TABLET AS NEEDED
     Route: 048
  37. GEODON [Suspect]
     Active Substance: ZIPRASIDONE HYDROCHLORIDE\ZIPRASIDONE MESYLATE
     Route: 065
  38. BACTRIM [Suspect]
     Active Substance: SULFAMETHOXAZOLE\TRIMETHOPRIM
     Route: 065
  39. CELEXA [Concomitant]
     Active Substance: CITALOPRAM HYDROBROMIDE
  40. SINGULAIR [Concomitant]
     Active Substance: MONTELUKAST SODIUM
  41. SYNTHROID [Concomitant]
     Active Substance: LEVOTHYROXINE SODIUM
  42. RESTASIS [Concomitant]
     Active Substance: CYCLOSPORINE
  43. PNEUMOCOCCAL VACCINE POLYVALENT NOS [Concomitant]
     Active Substance: PNEUMOCOCCAL VACCINE POLYVALENT
     Dates: start: 20141114
  44. NORCO [Concomitant]
     Active Substance: ACETAMINOPHEN\HYDROCODONE BITARTRATE
     Dates: start: 20161121
  45. PROTOPIC [Concomitant]
     Active Substance: TACROLIMUS
  46. CYCLOSPORINE. [Suspect]
     Active Substance: CYCLOSPORINE
     Route: 065
  47. DIAMOX SEQUELS [Suspect]
     Active Substance: ACETAZOLAMIDE
     Route: 065
  48. SULFASALAZINE. [Suspect]
     Active Substance: SULFASALAZINE
     Route: 065
  49. RITUXAN [Suspect]
     Active Substance: RITUXIMAB
     Route: 065
  50. TAMIFLU [Concomitant]
     Active Substance: OSELTAMIVIR PHOSPHATE
  51. PREVACID [Concomitant]
     Active Substance: LANSOPRAZOLE
  52. REFRESH [Concomitant]
     Active Substance: UNSPECIFIED INGREDIENT
  53. FLU VACCINE VII [Concomitant]
     Active Substance: INFLUENZA VIRUS VACCINE
     Dates: start: 20140214
  54. SIMPONI ARIA [Suspect]
     Active Substance: GOLIMUMAB
     Route: 065
  55. AMPICILLIN [Suspect]
     Active Substance: AMPICILLIN
     Route: 065
  56. BACTROBAN [Concomitant]
     Active Substance: MUPIROCIN\MUPIROCIN CALCIUM
  57. SYSTANE (HYPROMELLOSE 2910 (4000 MPA.S)) [Concomitant]
     Active Substance: HYPROMELLOSE 2910 (4000 MPA.S)
  58. MOBIC [Concomitant]
     Active Substance: MELOXICAM
  59. RETIN-A [Concomitant]
     Active Substance: TRETINOIN
  60. ZANTAC [Concomitant]
     Active Substance: RANITIDINE HYDROCHLORIDE
  61. CIPROFLOXACIN. [Suspect]
     Active Substance: CIPROFLOXACIN
     Route: 065
  62. ARAVA [Suspect]
     Active Substance: LEFLUNOMIDE
     Route: 065
  63. DOXYCYCLINE. [Suspect]
     Active Substance: DOXYCYCLINE
     Route: 065
  64. FOLIC ACID. [Concomitant]
     Active Substance: FOLIC ACID
  65. TAZACT [Concomitant]
  66. ZADITOR [Concomitant]
     Active Substance: KETOTIFEN FUMARATE

REACTIONS (52)
  - Haemorrhagic diathesis [Unknown]
  - Loss of consciousness [Unknown]
  - Chills [Unknown]
  - Rhinorrhoea [Unknown]
  - Photophobia [Unknown]
  - Rash [Unknown]
  - Blister [Unknown]
  - Osteoarthritis [Unknown]
  - Visual impairment [Unknown]
  - Diarrhoea [Unknown]
  - Constipation [Unknown]
  - Contusion [Unknown]
  - Dysphoria [Unknown]
  - Thinking abnormal [Unknown]
  - Hallucination [Unknown]
  - Interstitial lung disease [Unknown]
  - Dry skin [Unknown]
  - Erythema [Unknown]
  - Oral pain [Unknown]
  - Dysphagia [Unknown]
  - Abdominal pain [Unknown]
  - Myalgia [Unknown]
  - Tenderness [Unknown]
  - Skin warm [Unknown]
  - Dizziness [Unknown]
  - Vomiting [Unknown]
  - Drug hypersensitivity [Not Recovered/Not Resolved]
  - Oedema [Unknown]
  - Fatigue [Unknown]
  - Pruritus [Unknown]
  - Musculoskeletal stiffness [Unknown]
  - Headache [Unknown]
  - Anaphylactic reaction [Unknown]
  - Appetite disorder [Unknown]
  - Wheezing [Unknown]
  - Gait disturbance [Unknown]
  - Asthenia [Unknown]
  - Nausea [Unknown]
  - Ear pain [Unknown]
  - Back pain [Unknown]
  - Arthralgia [Unknown]
  - Neck pain [Unknown]
  - Abdominal discomfort [Unknown]
  - Rheumatoid arthritis [Unknown]
  - Sjogren^s syndrome [Unknown]
  - Arthritis infective [Unknown]
  - Skin disorder [Unknown]
  - Sneezing [Unknown]
  - Pain [Unknown]
  - Dyspnoea [Unknown]
  - Joint swelling [Unknown]
  - Hypoaesthesia [Unknown]

NARRATIVE: CASE EVENT DATE: 20110914
